FAERS Safety Report 14343364 (Version 3)
Quarter: 2018Q2

REPORT INFORMATION
  Report Type: Report from Study
  Country: US (occurrence: US)
  Receive Date: 20180102
  Receipt Date: 20180413
  Transmission Date: 20180711
  Serious: Yes (Hospitalization)
  Sender: FDA-Public Use
  Company Number: US-VIFOR (INTERNATIONAL) INC.-VIT-2017-13925

PATIENT
  Age: 49 Year
  Sex: Male
  Weight: 140.74 kg

DRUGS (15)
  1. BISACODYL. [Concomitant]
     Active Substance: BISACODYL
  2. FERROUS SULFATE. [Concomitant]
     Active Substance: FERROUS SULFATE
  3. NORTRIPTYLINE [Concomitant]
     Active Substance: NORTRIPTYLINE
  4. COLECALCIFEROL~~CALCIUM CARBONATE [Concomitant]
  5. PANTOPRAZOLE [Concomitant]
     Active Substance: PANTOPRAZOLE
  6. ACETYLSALICYLIC ACID [Concomitant]
     Active Substance: ASPIRIN
  7. CLOPIDOGREL [Concomitant]
     Active Substance: CLOPIDOGREL BISULFATE
  8. METFORMIN [Concomitant]
     Active Substance: METFORMIN HYDROCHLORIDE
  9. FISH OIL [Concomitant]
     Active Substance: FISH OIL
  10. ATORVASTATIN [Concomitant]
     Active Substance: ATORVASTATIN
  11. AVODART [Concomitant]
     Active Substance: DUTASTERIDE
  12. FUROSEMIDE. [Concomitant]
     Active Substance: FUROSEMIDE
  13. VELTASSA [Suspect]
     Active Substance: PATIROMER
     Indication: HYPERKALAEMIA
     Route: 048
     Dates: start: 20160615
  14. LISINOPRIL. [Concomitant]
     Active Substance: LISINOPRIL
  15. COLECALCIFEROL [Concomitant]
     Active Substance: CHOLECALCIFEROL

REACTIONS (6)
  - Urinary retention [Recovered/Resolved]
  - Blood cholesterol increased [Recovering/Resolving]
  - Electrolyte imbalance [Recovered/Resolved]
  - Blood iron increased [Unknown]
  - Renal failure [Not Recovered/Not Resolved]
  - Blood potassium increased [Recovering/Resolving]

NARRATIVE: CASE EVENT DATE: 20171123
